FAERS Safety Report 5457089-0 (Version None)
Quarter: 2007Q3

REPORT INFORMATION
  Report Type: 
  Country: None (occurrence: None)
  Receive Date: 20070918
  Receipt Date: 20070906
  Transmission Date: 20080115
  Serious: Yes (Other)
  Sender: FDA-Public Use
  Company Number: US-PFIZER INC-2007030335

PATIENT
  Sex: Male

DRUGS (1)
  1. BEXTRA [Suspect]
     Route: 048

REACTIONS (6)
  - FLATULENCE [None]
  - MUSCLE SPASMS [None]
  - MYOCARDIAL INFARCTION [None]
  - ORGAN FAILURE [None]
  - STEVENS-JOHNSON SYNDROME [None]
  - THROMBOSIS [None]
